FAERS Safety Report 7293605-4 (Version None)
Quarter: 2011Q1

REPORT INFORMATION
  Report Type: 
  Country: None (occurrence: None)
  Receive Date: 20110215
  Receipt Date: 20110211
  Transmission Date: 20110831
  Serious: Yes (Death, Hospitalization)
  Sender: FDA-Public Use
  Company Number: A0849277A

PATIENT
  Sex: Female

DRUGS (1)
  1. AVANDIA [Suspect]
     Dosage: 4MG UNKNOWN
     Route: 048

REACTIONS (5)
  - MYOCARDIAL INFARCTION [None]
  - CARDIAC FAILURE CONGESTIVE [None]
  - DEATH [None]
  - CEREBROVASCULAR ACCIDENT [None]
  - TRANSIENT ISCHAEMIC ATTACK [None]
